FAERS Safety Report 7121224-9 (Version None)
Quarter: 2010Q4

REPORT INFORMATION
  Report Type: 
  Country: None (occurrence: None)
  Receive Date: 20101122
  Receipt Date: 20101122
  Transmission Date: 20110411
  Serious: Yes (Other)
  Sender: FDA-Public Use
  Company Number: None

PATIENT
  Sex: Male
  Weight: 74.8435 kg

DRUGS (4)
  1. TRAVATAN Z [Suspect]
     Indication: OPEN ANGLE GLAUCOMA
     Dosage: 1 DROP QHS OPHTHALMIC
     Route: 047
     Dates: start: 20100220, end: 20100225
  2. BETIMOL [Concomitant]
  3. AZOPT [Concomitant]
  4. ASPIRIN [Concomitant]

REACTIONS (3)
  - EYE PAIN [None]
  - HEADACHE [None]
  - NAUSEA [None]
